FAERS Safety Report 5716543-4 (Version None)
Quarter: 2008Q2

REPORT INFORMATION
  Report Type: 
  Country: None (occurrence: None)
  Receive Date: 20080424
  Receipt Date: 20080415
  Transmission Date: 20081010
  Serious: Yes (Hospitalization, Other)
  Sender: FDA-Public Use
  Company Number: US-ELI_LILLY_AND_COMPANY-US200804003911

PATIENT
  Sex: Male

DRUGS (10)
  1. HUMULIN R [Suspect]
     Dosage: SLIDING SCALE
     Dates: start: 20030101
  2. LANTUS [Concomitant]
  3. METFORMIN HCL [Concomitant]
     Dosage: 500 UNK, 2/D
  4. ASPIRIN [Concomitant]
     Dosage: 81 MG, UNK
  5. VYTORIN [Concomitant]
  6. LISINOPRIL [Concomitant]
  7. METOPROLOL TARTRATE [Concomitant]
     Dosage: 100 UNK, 2/D
  8. PLAVIX [Concomitant]
     Dosage: 75 UNK, DAILY (1/D)
  9. NIFEDIPINE [Concomitant]
     Dosage: 30 MG, DAILY (1/D)
  10. NITROGLYCERIN [Concomitant]
     Dosage: UNK, AS NEEDED

REACTIONS (5)
  - ANGIOPLASTY [None]
  - BLOOD GLUCOSE INCREASED [None]
  - CORONARY ARTERY OCCLUSION [None]
  - STENT PLACEMENT [None]
  - VASCULAR OCCLUSION [None]
